FAERS Safety Report 16115159 (Version 1)
Quarter: 2019Q1

REPORT INFORMATION
  Report Type: Report from Study
  Country: DE (occurrence: DE)
  Receive Date: 20190325
  Receipt Date: 20190325
  Transmission Date: 20190418
  Serious: Yes (Life-Threatening, Hospitalization, Other)
  Sender: FDA-Public Use
  Company Number: DE-BIOGEN-2012BI033797

PATIENT
  Age: 36 Year
  Sex: Female
  Weight: 66 kg

DRUGS (10)
  1. TYSABRI [Suspect]
     Active Substance: NATALIZUMAB
     Route: 065
     Dates: end: 20091014
  2. KATADOLON [Concomitant]
     Active Substance: FLUPIRTINE
     Indication: PRODUCT USED FOR UNKNOWN INDICATION
     Route: 065
     Dates: start: 20120531
  3. TYSABRI [Suspect]
     Active Substance: NATALIZUMAB
     Indication: RELAPSING-REMITTING MULTIPLE SCLEROSIS
     Route: 065
     Dates: start: 201205
  4. CERAZETTE [Concomitant]
     Indication: CONTRACEPTION
     Route: 065
     Dates: start: 201206
  5. KATADOLON [Concomitant]
     Active Substance: FLUPIRTINE
     Route: 065
     Dates: start: 201208, end: 20120817
  6. AMITRIPTYLIN [Concomitant]
     Active Substance: AMITRIPTYLINE
     Indication: PRODUCT USED FOR UNKNOWN INDICATION
     Route: 065
     Dates: start: 201101
  7. MAXALL LINGUA [Concomitant]
     Indication: MIGRAINE
     Route: 065
     Dates: start: 201001
  8. TYSABRI [Suspect]
     Active Substance: NATALIZUMAB
     Route: 042
     Dates: start: 20120601, end: 20120727
  9. EMSELEX [Concomitant]
     Active Substance: DARIFENACIN HYDROBROMIDE
     Indication: BLADDER DYSFUNCTION
     Route: 065
     Dates: start: 20071130
  10. TOPINAMAT ACTAVIS [Concomitant]
     Indication: BLADDER DYSFUNCTION
     Route: 065
     Dates: start: 201004

REACTIONS (4)
  - Acute hepatic failure [Not Recovered/Not Resolved]
  - Vertigo positional [Not Recovered/Not Resolved]
  - Hepatic encephalopathy [Not Recovered/Not Resolved]
  - Cholelithiasis [Not Recovered/Not Resolved]

NARRATIVE: CASE EVENT DATE: 20120817
